FAERS Safety Report 8539367-1 (Version None)
Quarter: 2012Q3

REPORT INFORMATION
  Report Type: 
  Country: None (occurrence: None)
  Receive Date: 20120726
  Receipt Date: 20110725
  Transmission Date: 20120928
  Serious: No
  Sender: FDA-Public Use
  Company Number: US-ASTRAZENECA-2011SE44425

PATIENT
  Age: 58 Year
  Sex: Male

DRUGS (8)
  1. SEROQUEL [Suspect]
     Dosage: 300 MG, HALF TABLET DAILY
     Route: 048
     Dates: start: 20110509, end: 20110716
  2. LISINOPRIL [Concomitant]
     Indication: HYPERTENSION
  3. SIMVASTATIN [Concomitant]
     Indication: HYPERCHOLESTEROLAEMIA
  4. SEROQUEL [Suspect]
     Indication: SCHIZOPHRENIA
     Route: 048
     Dates: start: 20110430, end: 20110509
  5. METFORMIN HYDROCHLORIDE [Concomitant]
     Indication: DIABETES MELLITUS
  6. LOPID [Concomitant]
     Indication: HYPERTRIGLYCERIDAEMIA
  7. SEROQUEL [Suspect]
     Indication: BIPOLAR DISORDER
     Route: 048
     Dates: start: 20110430, end: 20110509
  8. SEROQUEL [Suspect]
     Dosage: 300 MG, HALF TABLET DAILY
     Route: 048
     Dates: start: 20110509, end: 20110716

REACTIONS (18)
  - THIRST [None]
  - MUSCULAR WEAKNESS [None]
  - WRONG TECHNIQUE IN DRUG USAGE PROCESS [None]
  - CONFUSIONAL STATE [None]
  - HYPERHIDROSIS [None]
  - HEADACHE [None]
  - BACK PAIN [None]
  - ANGINA PECTORIS [None]
  - DIZZINESS [None]
  - NAUSEA [None]
  - CHOKING [None]
  - AMNESIA [None]
  - CHILLS [None]
  - EYE DISORDER [None]
  - PALPITATIONS [None]
  - POLLAKIURIA [None]
  - DYSPHAGIA [None]
  - BLOOD GLUCOSE INCREASED [None]
